FAERS Safety Report 9114443 (Version 1)
Quarter: 2013Q1

REPORT INFORMATION
  Report Type: Spontaneous
  Country: FR (occurrence: FR)
  Receive Date: 20130208
  Receipt Date: 20130208
  Transmission Date: 20140127
  Serious: Yes (Hospitalization)
  Sender: FDA-Public Use
  Company Number: FR-PFIZER INC-2013041564

PATIENT
  Age: 66 Year
  Sex: Male

DRUGS (2)
  1. ZYVOXID [Suspect]
     Indication: OSTEOMYELITIS
     Dosage: 600 MG, 2X/DAY
     Route: 048
     Dates: start: 20120822, end: 20121212
  2. TIENAM [Suspect]
     Indication: OSTEOMYELITIS
     Dosage: UNK
     Route: 048
     Dates: start: 20120822, end: 20121212

REACTIONS (1)
  - Pancreatitis acute [Recovering/Resolving]
